FAERS Safety Report 6217618-6 (Version None)
Quarter: 2009Q2

REPORT INFORMATION
  Report Type: 
  Country: None (occurrence: None)
  Receive Date: 20090608
  Receipt Date: 20090421
  Transmission Date: 20091009
  Serious: No
  Sender: FDA-Public Use
  Company Number: A0779934A

PATIENT
  Age: 68 Year
  Sex: Male

DRUGS (4)
  1. WELLBUTRIN XL [Suspect]
     Indication: DEPRESSION
     Dosage: 1TAB PER DAY
     Route: 048
     Dates: start: 20090323
  2. LYRICA [Concomitant]
  3. KLONOPIN [Concomitant]
  4. CARDURA [Concomitant]

REACTIONS (3)
  - COUGH [None]
  - DYSPNOEA [None]
  - SINUS CONGESTION [None]
